FAERS Safety Report 6111674-1 (Version None)
Quarter: 2009Q1

REPORT INFORMATION
  Report Type: 
  Country: None (occurrence: None)
  Receive Date: 20090309
  Receipt Date: 20090306
  Transmission Date: 20090719
  Serious: Yes (Death, Hospitalization)
  Sender: FDA-Public Use
  Company Number: GRT 2008-13791

PATIENT
  Age: 88 Year
  Sex: Male
  Weight: 80 kg

DRUGS (6)
  1. LIDOCAINE [Suspect]
     Dosage: 1/3 PATCH X 2 A DAY
     Dates: start: 20080929, end: 20081116
  2. LYRICA [Concomitant]
  3. HYDROCHLOROTHIAZIDE [Concomitant]
  4. COMBISARTAN [Concomitant]
  5. ASPIRIN [Concomitant]
  6. KEPPRA [Concomitant]

REACTIONS (5)
  - CEREBRAL HAEMATOMA [None]
  - COMA [None]
  - GENERAL PHYSICAL HEALTH DETERIORATION [None]
  - HEAD INJURY [None]
  - LOSS OF CONSCIOUSNESS [None]
